FAERS Safety Report 4564304-4 (Version None)
Quarter: 2005Q1

REPORT INFORMATION
  Report Type: 
  Country: None (occurrence: None)
  Receive Date: 20050128
  Receipt Date: 20050124
  Transmission Date: 20050727
  Serious: Yes (Hospitalization)
  Sender: FDA-Public Use
  Company Number: FR-MERCK-0501FRA00071

PATIENT
  Age: 68 Year
  Sex: Female

DRUGS (3)
  1. FOSAMAX [Suspect]
     Indication: OSTEOPOROSIS
     Route: 048
     Dates: start: 20020101, end: 20040101
  2. FOSAMAX [Suspect]
     Route: 048
     Dates: start: 20000101, end: 20020101
  3. [THERAPY UNSPECIFIED] [Concomitant]
     Indication: PAIN
     Route: 048
     Dates: end: 20040101

REACTIONS (1)
  - OESOPHAGEAL CARCINOMA [None]
